FAERS Safety Report 11642101 (Version 1)
Quarter: 2015Q4

REPORT INFORMATION
  Report Type: Spontaneous
  Country: FR (occurrence: FR)
  Receive Date: 20151019
  Receipt Date: 20151019
  Transmission Date: 20160304
  Serious: Yes (Death, Other)
  Sender: FDA-Public Use
  Company Number: FR-GILEAD-2015-0177762

PATIENT
  Age: 78 Year
  Sex: Male

DRUGS (6)
  1. ZYDELIG [Suspect]
     Active Substance: IDELALISIB
     Dosage: 200 UNK, UNK
     Route: 065
     Dates: start: 20150808
  2. RITUXIMAB [Concomitant]
     Active Substance: RITUXIMAB
     Dosage: UNK
     Dates: start: 20150611
  3. RITUXIMAB [Concomitant]
     Active Substance: RITUXIMAB
     Dosage: UNK
     Dates: start: 20150526
  4. RITUXIMAB [Concomitant]
     Active Substance: RITUXIMAB
     Dosage: UNK
     Dates: start: 20150710
  5. ZYDELIG [Suspect]
     Active Substance: IDELALISIB
     Indication: CHRONIC LYMPHOCYTIC LEUKAEMIA
     Dosage: 300 MG, QD
     Route: 065
     Dates: start: 201504
  6. RITUXIMAB [Concomitant]
     Active Substance: RITUXIMAB
     Dosage: UNK
     Dates: start: 20150625

REACTIONS (2)
  - Death [Fatal]
  - Cell death [Unknown]

NARRATIVE: CASE EVENT DATE: 20150908
